FAERS Safety Report 5725492-7 (Version None)
Quarter: 2008Q2

REPORT INFORMATION
  Report Type: 
  Country: None (occurrence: None)
  Receive Date: 20080501
  Receipt Date: 20080424
  Transmission Date: 20081010
  Serious: Yes (Disabling, Other)
  Sender: FDA-Public Use
  Company Number: US-JNJFOC-20080406814

PATIENT
  Sex: Female
  Weight: 54.43 kg

DRUGS (4)
  1. LEVAQUIN [Suspect]
     Indication: PSEUDOMONAS INFECTION
     Route: 048
  2. PROPRANOLOL [Concomitant]
  3. NEXIUM [Concomitant]
  4. RELPAX [Concomitant]

REACTIONS (5)
  - ARTHRALGIA [None]
  - BACK PAIN [None]
  - JOINT SWELLING [None]
  - MUSCULOSKELETAL CHEST PAIN [None]
  - PARAESTHESIA [None]
